FAERS Safety Report 4662395-3 (Version None)
Quarter: 2005Q2

REPORT INFORMATION
  Report Type: 
  Country: None (occurrence: None)
  Receive Date: 20050512
  Receipt Date: 20050502
  Transmission Date: 20051028
  Serious: Yes (Other)
  Sender: FDA-Public Use
  Company Number: 2005068841

PATIENT
  Sex: 0

DRUGS (2)
  1. PHENYTOIN [Suspect]
     Indication: ILL-DEFINED DISORDER
  2. ERYTHROMYCIN (ERYTHROMYCIN) [Suspect]
     Indication: ILL-DEFINED DISORDER

REACTIONS (4)
  - COORDINATION ABNORMAL [None]
  - DRUG INTERACTION [None]
  - DRUG TOXICITY [None]
  - FALL [None]
